FAERS Safety Report 7029683-7 (Version None)
Quarter: 2010Q4

REPORT INFORMATION
  Report Type: 
  Country: None (occurrence: None)
  Receive Date: 20101005
  Receipt Date: 20101005
  Transmission Date: 20110411
  Serious: Yes (Death)
  Sender: FDA-Public Use
  Company Number: None

PATIENT
  Sex: Male
  Weight: 60 kg

DRUGS (2)
  1. AZACITIDINE [Suspect]
     Dosage: 75 MG/M2 QD IV
     Route: 042
  2. REVLIMID [Suspect]
     Dosage: 50 MG QD PO

REACTIONS (11)
  - ATRIAL FIBRILLATION [None]
  - BLOOD BILIRUBIN INCREASED [None]
  - ELECTROCARDIOGRAM ST SEGMENT ABNORMAL [None]
  - FEBRILE NEUTROPENIA [None]
  - HAEMOLYTIC TRANSFUSION REACTION [None]
  - HAEMORRHAGIC STROKE [None]
  - MENTAL STATUS CHANGES [None]
  - PLATELET COUNT DECREASED [None]
  - SEPSIS [None]
  - TREMOR [None]
  - TROPONIN INCREASED [None]
